FAERS Safety Report 23630492 (Version 2)
Quarter: 2024Q1

REPORT INFORMATION
  Report Type: Report from Study
  Country: MX (occurrence: MX)
  Receive Date: 20240314
  Receipt Date: 20240319
  Transmission Date: 20240409
  Serious: Yes (Other)
  Sender: FDA-Public Use
  Company Number: MX-UCBSA-2024011941

PATIENT
  Sex: Female
  Weight: 60 kg

DRUGS (1)
  1. CERTOLIZUMAB PEGOL [Suspect]
     Active Substance: CERTOLIZUMAB PEGOL
     Indication: Rheumatoid arthritis
     Dosage: 200 MILLIGRAM, EV 2 WEEKS(QOW)
     Route: 058
     Dates: start: 20231019

REACTIONS (3)
  - Abortion spontaneous [Unknown]
  - Rheumatoid arthritis [Unknown]
  - Maternal exposure during pregnancy [Unknown]
